APPROVED DRUG PRODUCT: PROBENECID AND COLCHICINE
Active Ingredient: COLCHICINE; PROBENECID
Strength: 0.5MG;500MG
Dosage Form/Route: TABLET;ORAL
Application: A217030 | Product #001 | TE Code: AB
Applicant: RISING PHARMA HOLDINGS INC
Approved: Oct 24, 2023 | RLD: No | RS: No | Type: RX